FAERS Safety Report 13052423 (Version 2)
Quarter: 2017Q1

REPORT INFORMATION
  Report Type: Spontaneous
  Country: US (occurrence: US)
  Receive Date: 20161221
  Receipt Date: 20170209
  Transmission Date: 20170428
  Serious: No
  Sender: FDA-Public Use
  Company Number: US-ASTRAZENECA-2016SF31528

PATIENT
  Age: 78 Year
  Sex: Male
  Weight: 87.1 kg

DRUGS (5)
  1. BYDUREON [Suspect]
     Active Substance: EXENATIDE
     Indication: TYPE 2 DIABETES MELLITUS
     Route: 058
     Dates: start: 2013
  2. BYETTA [Suspect]
     Active Substance: EXENATIDE
     Indication: TYPE 2 DIABETES MELLITUS
     Route: 065
     Dates: start: 2006, end: 2013
  3. A STATIN [Concomitant]
     Indication: BLOOD CHOLESTEROL ABNORMAL
     Route: 048
  4. TOPROL XL [Suspect]
     Active Substance: METOPROLOL SUCCINATE
     Route: 048
  5. SYNTHROID [Concomitant]
     Active Substance: LEVOTHYROXINE SODIUM
     Indication: THYROID DISORDER
     Route: 048

REACTIONS (6)
  - Hypotension [Unknown]
  - Drug dose omission [Unknown]
  - Balance disorder [Unknown]
  - Blood cholesterol decreased [Unknown]
  - Circumstance or information capable of leading to medication error [Unknown]
  - Blood triglycerides decreased [Unknown]

NARRATIVE: CASE EVENT DATE: 2013
